FAERS Safety Report 9254415 (Version 1)
Quarter: 2013Q2

REPORT INFORMATION
  Report Type: Spontaneous
  Country: US (occurrence: None)
  Receive Date: 20130422
  Receipt Date: 20130422
  Transmission Date: 20140414
  Serious: No
  Sender: FDA-Public Use
  Company Number: None

PATIENT
  Age: 58 Year
  Sex: Female

DRUGS (1)
  1. ADCIRCA [Suspect]
     Indication: PULMONARY ARTERIAL HYPERTENSION
     Dosage: 20MG (2 TABS) QD PO
     Route: 048
     Dates: start: 20130417, end: 20130418

REACTIONS (4)
  - Local swelling [None]
  - Swelling face [None]
  - Jaw disorder [None]
  - Swelling [None]
